FAERS Safety Report 7213751-0 (Version None)
Quarter: 2011Q1

REPORT INFORMATION
  Report Type: 
  Country: None (occurrence: None)
  Receive Date: 20110106
  Receipt Date: 20101224
  Transmission Date: 20110831
  Serious: Yes (Hospitalization)
  Sender: FDA-Public Use
  Company Number: DE-MYLANLABS-2010S1022715

PATIENT
  Age: 70 Year
  Sex: Female
  Weight: 70 kg

DRUGS (3)
  1. ZOLPIDEM TARTRATE [Suspect]
     Route: 048
     Dates: start: 20101210, end: 20101210
  2. ATACAND [Suspect]
     Route: 048
     Dates: start: 20101210, end: 20101210
  3. BROMAZANIL [Suspect]
     Route: 048
     Dates: start: 20101210, end: 20101210

REACTIONS (4)
  - INTENTIONAL OVERDOSE [None]
  - SUICIDE ATTEMPT [None]
  - MIOSIS [None]
  - TACHYCARDIA [None]
